FAERS Safety Report 19868401 (Version 1)
Quarter: 2021Q3

REPORT INFORMATION
  Report Type: Report from Study
  Country: GB (occurrence: GB)
  Receive Date: 20210921
  Receipt Date: 20210921
  Transmission Date: 20211014
  Serious: Yes (Hospitalization, Other)
  Sender: FDA-Public Use
  Company Number: GB-SA-2019SA170318

PATIENT
  Age: 81 Year
  Sex: Male

DRUGS (1)
  1. DUPILUMAB [Suspect]
     Active Substance: DUPILUMAB
     Indication: DERMATITIS ATOPIC
     Dosage: 300 MG, Q4W
     Route: 058
     Dates: start: 201902

REACTIONS (10)
  - Pruritus [Unknown]
  - Scratch [Not Recovered/Not Resolved]
  - Rash macular [Not Recovered/Not Resolved]
  - Product use issue [Unknown]
  - Feeling abnormal [Unknown]
  - Blood uric acid increased [Unknown]
  - Suicidal ideation [Unknown]
  - Hypotension [Unknown]
  - Myocardial infarction [Unknown]
  - Eye disorder [Unknown]

NARRATIVE: CASE EVENT DATE: 2019
